FAERS Safety Report 14584563 (Version 1)
Quarter: 2018Q1

REPORT INFORMATION
  Report Type: Spontaneous
  Country: GB (occurrence: GB)
  Receive Date: 20180301
  Receipt Date: 20180301
  Transmission Date: 20180509
  Serious: Yes (Hospitalization)
  Sender: FDA-Public Use
  Company Number: GB-CONCORDIA PHARMACEUTICALS INC.-E2B_00010158

PATIENT
  Age: 81 Year
  Sex: Male

DRUGS (5)
  1. CEFTRIAXONE. [Suspect]
     Active Substance: CEFTRIAXONE
     Indication: CELLULITIS
  2. FLUCLOXACILLIN [Suspect]
     Active Substance: FLUCLOXACILLIN
     Indication: CELLULITIS
     Route: 048
  3. PREDNISOLONE. [Suspect]
     Active Substance: PREDNISOLONE
  4. VORICONAZOLE. [Suspect]
     Active Substance: VORICONAZOLE
     Indication: SCEDOSPORIUM INFECTION
     Route: 048
  5. PREDNISOLONE. [Suspect]
     Active Substance: PREDNISOLONE
     Indication: TEMPORAL ARTERITIS

REACTIONS (3)
  - C-reactive protein increased [Unknown]
  - Nephropathy [Unknown]
  - Cellulitis [Unknown]
